FAERS Safety Report 17026997 (Version 1)
Quarter: 2019Q4

REPORT INFORMATION
  Report Type: Spontaneous
  Country: US (occurrence: US)
  Receive Date: 20191113
  Receipt Date: 20191113
  Transmission Date: 20200122
  Serious: No
  Sender: FDA-Public Use
  Company Number: US-UNICHEM PHARMACEUTICALS (USA) INC-UCM201901-000018

PATIENT
  Age: 65 Year
  Sex: Male
  Weight: 81.6 kg

DRUGS (4)
  1. LAMOTRIGINE. [Suspect]
     Active Substance: LAMOTRIGINE
     Indication: BIPOLAR DISORDER
     Dosage: MORNING AND EVENING
  2. VALSARTAN AND HYDROCHLOROTHIAZIDE [Concomitant]
     Active Substance: HYDROCHLOROTHIAZIDE\VALSARTAN
     Indication: BLOOD PRESSURE ABNORMAL
     Dosage: 80/12.5 MG
  3. SIMVASTATIN. [Concomitant]
     Active Substance: SIMVASTATIN
     Indication: BLOOD CHOLESTEROL ABNORMAL
  4. ATENOLOL. [Concomitant]
     Active Substance: ATENOLOL
     Indication: BLOOD PRESSURE ABNORMAL
     Dosage: MORNING AND EVENING

REACTIONS (1)
  - Depression [Recovering/Resolving]
